FAERS Safety Report 6234583-6 (Version None)
Quarter: 2009Q2

REPORT INFORMATION
  Report Type: 
  Country: None (occurrence: None)
  Receive Date: 20090618
  Receipt Date: 20090609
  Transmission Date: 20091009
  Serious: Yes (Other)
  Sender: FDA-Public Use
  Company Number: CA-AMGEN-KDL343775

PATIENT
  Sex: Female

DRUGS (6)
  1. ENBREL [Suspect]
     Indication: RHEUMATOID ARTHRITIS
     Route: 058
     Dates: start: 20090105, end: 20090302
  2. PLAQUENIL [Concomitant]
     Dates: start: 20070901
  3. PANTOPRAZOLE SODIUM [Concomitant]
  4. SYNTHROID [Concomitant]
  5. DETROL [Concomitant]
  6. VASOTEC [Concomitant]

REACTIONS (11)
  - ALVEOLITIS ALLERGIC [None]
  - CHEST PAIN [None]
  - DRUG HYPERSENSITIVITY [None]
  - HEADACHE [None]
  - KYPHOSIS [None]
  - MALAISE [None]
  - MYCOPLASMA INFECTION [None]
  - PULMONARY EMBOLISM [None]
  - RESPIRATORY DISORDER [None]
  - RESPIRATORY DISTRESS [None]
  - SPINAL OSTEOARTHRITIS [None]
